FAERS Safety Report 25779884 (Version 1)
Quarter: 2025Q3

REPORT INFORMATION
  Report Type: Spontaneous
  Country: US (occurrence: US)
  Receive Date: 20250909
  Receipt Date: 20250909
  Transmission Date: 20251020
  Serious: Yes (Other)
  Sender: SANDOZ
  Company Number: US-002147023-NVSC2023US071006

PATIENT
  Sex: Female
  Weight: 142.4 kg

DRUGS (34)
  1. COSENTYX [Suspect]
     Active Substance: SECUKINUMAB
     Indication: Psoriasis
     Route: 042
  2. COSENTYX [Suspect]
     Active Substance: SECUKINUMAB
     Indication: Psoriatic arthropathy
  3. DIVALPROEX SODIUM [Suspect]
     Active Substance: DIVALPROEX SODIUM
     Indication: Psoriasis
     Route: 065
  4. DIVALPROEX SODIUM [Suspect]
     Active Substance: DIVALPROEX SODIUM
     Indication: Psoriatic arthropathy
  5. ESCITALOPRAM [Suspect]
     Active Substance: ESCITALOPRAM OXALATE
     Indication: Psoriasis
     Route: 065
  6. ESCITALOPRAM [Suspect]
     Active Substance: ESCITALOPRAM OXALATE
     Indication: Psoriatic arthropathy
  7. FOLIC ACID [Suspect]
     Active Substance: FOLIC ACID
     Indication: Psoriasis
     Route: 065
  8. FOLIC ACID [Suspect]
     Active Substance: FOLIC ACID
     Indication: Psoriatic arthropathy
  9. HYDROXYZINE PAMOATE [Suspect]
     Active Substance: HYDROXYZINE PAMOATE
     Indication: Psoriasis
     Route: 065
  10. HYDROXYZINE PAMOATE [Suspect]
     Active Substance: HYDROXYZINE PAMOATE
     Indication: Psoriatic arthropathy
  11. LORATADINE [Suspect]
     Active Substance: LORATADINE
     Indication: Psoriasis
     Route: 065
  12. LORATADINE [Suspect]
     Active Substance: LORATADINE
     Indication: Psoriatic arthropathy
  13. METFORMIN [Suspect]
     Active Substance: METFORMIN HYDROCHLORIDE
     Indication: Psoriasis
     Route: 065
  14. METFORMIN [Suspect]
     Active Substance: METFORMIN HYDROCHLORIDE
     Indication: Psoriatic arthropathy
  15. METHOTREXATE [Suspect]
     Active Substance: METHOTREXATE
     Indication: Psoriasis
     Route: 065
  16. METHOTREXATE [Suspect]
     Active Substance: METHOTREXATE
     Indication: Psoriatic arthropathy
  17. MEDROXYPROGESTERONE [Suspect]
     Active Substance: MEDROXYPROGESTERONE
     Indication: Psoriasis
     Route: 065
  18. MEDROXYPROGESTERONE [Suspect]
     Active Substance: MEDROXYPROGESTERONE
     Indication: Psoriatic arthropathy
  19. NABUMETONE [Suspect]
     Active Substance: NABUMETONE
     Indication: Psoriasis
     Route: 065
  20. NABUMETONE [Suspect]
     Active Substance: NABUMETONE
     Indication: Psoriatic arthropathy
  21. NAPROSYN [Suspect]
     Active Substance: NAPROXEN
     Indication: Product used for unknown indication
     Route: 065
  22. OMEPRAZOLE [Suspect]
     Active Substance: OMEPRAZOLE
     Indication: Psoriatic arthropathy
     Route: 065
  23. OMEPRAZOLE [Suspect]
     Active Substance: OMEPRAZOLE
     Indication: Psoriasis
  24. PREDNISONE [Suspect]
     Active Substance: PREDNISONE
     Indication: Psoriasis
     Route: 065
  25. PREDNISONE [Suspect]
     Active Substance: PREDNISONE
     Indication: Arthralgia
  26. PREDNISONE [Suspect]
     Active Substance: PREDNISONE
     Indication: Pain in extremity
  27. PREDNISONE [Suspect]
     Active Substance: PREDNISONE
     Indication: Paraesthesia
  28. PREDNISONE [Suspect]
     Active Substance: PREDNISONE
     Indication: Psoriatic arthropathy
  29. SULFASALAZINE [Suspect]
     Active Substance: SULFASALAZINE
     Indication: Psoriasis
     Route: 065
  30. SULFASALAZINE [Suspect]
     Active Substance: SULFASALAZINE
     Indication: Psoriatic arthropathy
  31. TOPIRAMATE [Suspect]
     Active Substance: TOPIRAMATE
     Indication: Psoriasis
     Route: 065
  32. TOPIRAMATE [Suspect]
     Active Substance: TOPIRAMATE
     Indication: Psoriatic arthropathy
  33. TRAMADOL [Suspect]
     Active Substance: TRAMADOL
     Indication: Psoriasis
     Route: 065
  34. TRAMADOL [Suspect]
     Active Substance: TRAMADOL
     Indication: Psoriatic arthropathy

REACTIONS (6)
  - Obesity [Unknown]
  - Arthralgia [Recovering/Resolving]
  - Pain in extremity [Recovering/Resolving]
  - Paraesthesia [Recovering/Resolving]
  - Drug ineffective [Unknown]
  - Product use in unapproved indication [Unknown]
